FAERS Safety Report 17943506 (Version 1)
Quarter: 2020Q2

REPORT INFORMATION
  Report Type: Report from Study
  Country: MX (occurrence: MX)
  Receive Date: 20200625
  Receipt Date: 20200625
  Transmission Date: 20200714
  Serious: Yes (Hospitalization)
  Sender: FDA-Public Use
  Company Number: NVSC2020MX174270

PATIENT
  Sex: Female
  Weight: 72 kg

DRUGS (1)
  1. ACLASTA [Suspect]
     Active Substance: ZOLEDRONIC ACID
     Indication: OSTEOPOROSIS
     Dosage: 1 DF (STARTED APPROXIMATELY 3 YEARS AGO)EVERY ONE YEAR OR ONE YEAR AND A HALF
     Route: 042

REACTIONS (3)
  - Hypoacusis [Not Recovered/Not Resolved]
  - Inappropriate schedule of product administration [Unknown]
  - Haemorrhage urinary tract [Unknown]
